FAERS Safety Report 7945698-6 (Version None)
Quarter: 2011Q4

REPORT INFORMATION
  Report Type: 
  Country: None (occurrence: None)
  Receive Date: 20111125
  Receipt Date: 20111116
  Transmission Date: 20120403
  Serious: Yes (Hospitalization, Other)
  Sender: FDA-Public Use
  Company Number: AUR-APL-2011-05767

PATIENT
  Age: 27 Year
  Sex: Female

DRUGS (5)
  1. KEPPRA [Suspect]
     Indication: PRODUCT USED FOR UNKNOWN INDICATION
     Dates: start: 20110607, end: 20110620
  2. SOLIRIS [Suspect]
     Indication: HAEMOLYTIC URAEMIC SYNDROME
     Dosage: (900 MG),INTRAVENOUS
     Route: 042
     Dates: start: 20110601, end: 20110903
  3. AZITHROMYCIN [Suspect]
     Indication: PRODUCT USED FOR UNKNOWN INDICATION
     Dates: start: 20110617, end: 20110701
  4. RIFAXIMIN [Suspect]
     Indication: PRODUCT USED FOR UNKNOWN INDICATION
     Dates: start: 20110614, end: 20110620
  5. RAMIPRIL [Suspect]
     Indication: PRODUCT USED FOR UNKNOWN INDICATION
     Dates: start: 20110615, end: 20110701

REACTIONS (3)
  - PANCREATITIS [None]
  - INSULIN C-PEPTIDE DECREASED [None]
  - COLITIS ISCHAEMIC [None]
